FAERS Safety Report 17136442 (Version 4)
Quarter: 2020Q1

REPORT INFORMATION
  Report Type: Spontaneous
  Country: CO (occurrence: CO)
  Receive Date: 20191210
  Receipt Date: 20200228
  Transmission Date: 20200409
  Serious: Yes (Life-Threatening, Hospitalization)
  Sender: FDA-Public Use
  Company Number: CO-UNITED THERAPEUTICS-UNT-2019-020451

PATIENT

DRUGS (5)
  1. SILDENAFIL. [Concomitant]
     Active Substance: SILDENAFIL
     Indication: PULMONARY HYPERTENSION
     Dosage: 50 MG, Q8H
     Route: 048
     Dates: start: 201601
  2. LOPERAMIDE [Concomitant]
     Active Substance: LOPERAMIDE
     Indication: DIARRHOEA
     Dosage: 8 MG, Q8H
     Route: 048
     Dates: start: 201709
  3. REMODULIN [Suspect]
     Active Substance: TREPROSTINIL
     Indication: PULMONARY ARTERIAL HYPERTENSION
     Dosage: 0.047 ?G/KG, CONTINUING, INFUSION RATE OF 0.026 CC/H
     Route: 058
  4. REMODULIN [Suspect]
     Active Substance: TREPROSTINIL
     Indication: CONGENITAL PULMONARY HYPERTENSION
     Dosage: 0.044 ?G/KG, CONTINUING, INFUSION RATE OF 0.024 CC/H
     Route: 058
     Dates: start: 20170731
  5. BOSENTAN. [Concomitant]
     Active Substance: BOSENTAN
     Indication: PULMONARY HYPERTENSION
     Dosage: 125 MG, Q12H
     Route: 048
     Dates: start: 201601

REACTIONS (9)
  - Sinus pain [Recovered/Resolved]
  - Malaise [Recovered/Resolved]
  - Oropharyngeal pain [Recovered/Resolved]
  - Discomfort [Unknown]
  - Diarrhoea [Unknown]
  - Headache [Recovered/Resolved]
  - Catheter site pain [Unknown]
  - Product adhesion issue [Unknown]
  - Catheter site erythema [Unknown]

NARRATIVE: CASE EVENT DATE: 20191203
